FAERS Safety Report 5599183-X (Version None)
Quarter: 2008Q1

REPORT INFORMATION
  Report Type: 
  Country: None (occurrence: None)
  Receive Date: 20080117
  Receipt Date: 20080107
  Transmission Date: 20080703
  Serious: Yes (Hospitalization)
  Sender: FDA-Public Use
  Company Number: 230297J07USA

PATIENT
  Age: 39 Year
  Sex: Female
  Weight: 85.7298 kg

DRUGS (5)
  1. REBIF [Suspect]
     Indication: MULTIPLE SCLEROSIS
     Dosage: 44 MCG, 3 IN 1 WEEKS, SUBCUTANEOUS
     Route: 058
     Dates: start: 20070706, end: 20071219
  2. LEXAPRO [Suspect]
     Indication: DEPRESSION
     Dates: start: 20070701, end: 20071103
  3. REMERON [Concomitant]
  4. FENTANYL [Concomitant]
  5. PROZAC [Concomitant]

REACTIONS (4)
  - CHILLS [None]
  - DYSTONIA [None]
  - PYREXIA [None]
  - TREMOR [None]
